FAERS Safety Report 11860205 (Version 1)
Quarter: 2015Q4

REPORT INFORMATION
  Report Type: Report from Study
  Country: DE (occurrence: KR)
  Receive Date: 20151222
  Receipt Date: 20151222
  Transmission Date: 20160305
  Serious: Yes (Death, Hospitalization)
  Sender: FDA-Public Use
  Company Number: DE-ACTELION-A-US2015-128951

PATIENT
  Age: 48 Year
  Sex: Female

DRUGS (2)
  1. VENTAVIS [Suspect]
     Active Substance: ILOPROST
     Indication: PULMONARY ARTERIAL HYPERTENSION
     Dosage: 6 X/ADAY
     Route: 055
     Dates: start: 20150326, end: 201512
  2. OXYGEN. [Concomitant]
     Active Substance: OXYGEN

REACTIONS (18)
  - Inflammatory marker increased [Unknown]
  - Decreased appetite [Unknown]
  - Pneumothorax [Recovered/Resolved]
  - Dyspnoea [Not Recovered/Not Resolved]
  - Affect lability [Unknown]
  - Depression [Unknown]
  - Pyrexia [Unknown]
  - Dry skin [Unknown]
  - Hypoaesthesia [Unknown]
  - Asthenia [Unknown]
  - Painful respiration [Not Recovered/Not Resolved]
  - Rhinalgia [Unknown]
  - Drug ineffective [Unknown]
  - Chest pain [Not Recovered/Not Resolved]
  - Erythema [Unknown]
  - Death [Fatal]
  - Aphthous ulcer [Unknown]
  - Oral pain [Unknown]

NARRATIVE: CASE EVENT DATE: 20150326
